FAERS Safety Report 6478055-2 (Version None)
Quarter: 2009Q4

REPORT INFORMATION
  Report Type: 
  Country: None (occurrence: None)
  Receive Date: 20091203
  Receipt Date: 20091203
  Transmission Date: 20100525
  Serious: Yes (Other)
  Sender: FDA-Public Use
  Company Number: None

PATIENT
  Age: 19 Year
  Sex: Female
  Weight: 53.0709 kg

DRUGS (2)
  1. ABILIFY [Suspect]
     Indication: BIPOLAR I DISORDER
     Dosage: 30MG 1 PO
     Route: 048
     Dates: start: 20061001, end: 20080831
  2. ADDERALL XR 10 [Concomitant]

REACTIONS (2)
  - GAZE PALSY [None]
  - OCULOGYRIC CRISIS [None]
